FAERS Safety Report 15775332 (Version 1)
Quarter: 2018Q4

REPORT INFORMATION
  Report Type: Report from Study
  Country: US (occurrence: US)
  Receive Date: 20181231
  Receipt Date: 20181231
  Transmission Date: 20190205
  Serious: Yes (Hospitalization)
  Sender: FDA-Public Use
  Company Number: US-ACADIA PHARMACEUTICALS INC.-ACA-2018-010695

PATIENT
  Age: 60 Year
  Sex: Male

DRUGS (3)
  1. NUPLAZID [Suspect]
     Active Substance: PIMAVANSERIN TARTRATE
     Indication: DELUSION
     Dosage: 10 MG, QD
     Route: 048
     Dates: start: 201811, end: 20181219
  2. NUPLAZID [Suspect]
     Active Substance: PIMAVANSERIN TARTRATE
     Indication: PARKINSON^S DISEASE PSYCHOSIS
  3. NUPLAZID [Suspect]
     Active Substance: PIMAVANSERIN TARTRATE
     Indication: HALLUCINATION
     Dosage: 34 MG, QD
     Route: 065
     Dates: start: 201809, end: 201810

REACTIONS (8)
  - Parkinson^s disease [Unknown]
  - Underdose [Unknown]
  - Paranoia [Not Recovered/Not Resolved]
  - Drug intolerance [Unknown]
  - Agitation [Recovering/Resolving]
  - Confusional state [Not Recovered/Not Resolved]
  - Delusion [Not Recovered/Not Resolved]
  - Memory impairment [Unknown]

NARRATIVE: CASE EVENT DATE: 20181001
